FAERS Safety Report 7685460-5 (Version None)
Quarter: 2011Q3

REPORT INFORMATION
  Report Type: 
  Country: None (occurrence: None)
  Receive Date: 20110816
  Receipt Date: 20110309
  Transmission Date: 20111222
  Serious: No
  Sender: FDA-Public Use
  Company Number: US-BRISTOL-MYERS SQUIBB COMPANY-15598469

PATIENT
  Age: 61 Year
  Sex: Female

DRUGS (7)
  1. LISINOPRIL [Concomitant]
  2. TRILIPIX [Concomitant]
  3. LOPRESSOR [Concomitant]
  4. GLYBURIDE AND METFORMIN HYDROCHLORIDE [Suspect]
  5. NOVOLOG [Concomitant]
     Dosage: 1DF=70/30 MIX UNITS NOT SPECIFIED
  6. LOVAZA [Concomitant]
  7. FEXOFENADINE HCL [Concomitant]

REACTIONS (1)
  - BLOOD GLUCOSE DECREASED [None]
